FAERS Safety Report 23535529 (Version 2)
Quarter: 2024Q1

REPORT INFORMATION
  Report Type: Spontaneous
  Country: US (occurrence: None)
  Receive Date: 20240218
  Receipt Date: 20240221
  Transmission Date: 20240410
  Serious: Yes (Other)
  Sender: FDA-Public Use
  Company Number: 2024A033630

PATIENT
  Age: 724 Month
  Sex: Female

DRUGS (2)
  1. SYMBICORT [Suspect]
     Active Substance: BUDESONIDE\FORMOTEROL FUMARATE DIHYDRATE
     Indication: Cough
     Dosage: 160/4.5 UG, ONE PUFF TWICE A DAILY
     Route: 055
     Dates: start: 2022
  2. SYMBICORT [Suspect]
     Active Substance: BUDESONIDE\FORMOTEROL FUMARATE DIHYDRATE
     Indication: Vomiting
     Dosage: 160/4.5 UG, ONE PUFF TWICE A DAILY
     Route: 055
     Dates: start: 2022

REACTIONS (6)
  - Lung disorder [Unknown]
  - Wrong technique in device usage process [Unknown]
  - Product use issue [Unknown]
  - Intentional product misuse [Unknown]
  - Device use issue [Unknown]
  - Device delivery system issue [Unknown]

NARRATIVE: CASE EVENT DATE: 20240101
